FAERS Safety Report 20740824 (Version 1)
Quarter: 2022Q2

REPORT INFORMATION
  Report Type: Spontaneous
  Country: NO (occurrence: NO)
  Receive Date: 20220422
  Receipt Date: 20220422
  Transmission Date: 20220721
  Serious: No
  Sender: FDA-Public Use
  Company Number: NO-ALKERMES INC.-ALK-2022-000370

PATIENT

DRUGS (1)
  1. VIVITROL [Suspect]
     Active Substance: NALTREXONE
     Indication: Drug dependence
     Dosage: 380 MILLIGRAM, QMO
     Route: 030

REACTIONS (4)
  - Discomfort [Unknown]
  - Emotional distress [Unknown]
  - Dependence [Unknown]
  - Drug dependence [Unknown]
